FAERS Safety Report 5465837-9 (Version None)
Quarter: 2007Q3

REPORT INFORMATION
  Report Type: 
  Country: None (occurrence: None)
  Receive Date: 20070919
  Receipt Date: 20070919
  Transmission Date: 20080115
  Serious: Yes (Death)
  Sender: FDA-Public Use
  Company Number: None

PATIENT
  Age: 62 Year
  Sex: Female
  Weight: 69.4003 kg

DRUGS (2)
  1. FENTANYL TRANSDERMAL SYSTEM [Suspect]
     Indication: OSTEOARTHRITIS
     Dosage: 75 MGM/M2 Q 72 HOURS PATCH - #10 (ONLY 1 USED)
     Dates: start: 20070924, end: 20070926
  2. FENTANYL TRANSDERMAL SYSTEM [Suspect]
     Indication: SPINAL OSTEOARTHRITIS
     Dosage: 75 MGM/M2 Q 72 HOURS PATCH - #10 (ONLY 1 USED)
     Dates: start: 20070924, end: 20070926

REACTIONS (4)
  - ANALGESIC DRUG LEVEL ABOVE THERAPEUTIC [None]
  - FATIGUE [None]
  - HYPERSOMNIA [None]
  - MEDICATION ERROR [None]
